FAERS Safety Report 18200178 (Version 1)
Quarter: 2020Q3

REPORT INFORMATION
  Report Type: Spontaneous
  Country: US (occurrence: US)
  Receive Date: 20200826
  Receipt Date: 20200826
  Transmission Date: 20201103
  Serious: Yes (Death)
  Sender: FDA-Public Use
  Company Number: US-FRESENIUS MEDICAL CARE RENAL THERAPIES GROUP-FMC-2008-000994

PATIENT
  Age: 69 Year
  Sex: Male
  Weight: 87.5 kg

DRUGS (2)
  1. DELFLEX WITH DEXTROSE 2.5% LOW MAGNESIUM LOW CALCIUM [Suspect]
     Active Substance: CALCIUM CHLORIDE\DEXTROSE\MAGNESIUM CHLORIDE\SODIUM CHLORIDE\SODIUM LACTATE
     Indication: END STAGE RENAL DISEASE
     Dosage: 2000 ML WITH NO LAST FILL AND A DAYTIME EXCHANGE OF 2000 ML, SINCE 17DEC2018
     Route: 033
     Dates: start: 20181217
  2. DELFLEX WITH DEXTROSE 1.5% LOW MAGNESIUM LOW CALCIUM [Suspect]
     Active Substance: CALCIUM CHLORIDE\DEXTROSE\MAGNESIUM CHLORIDE\SODIUM CHLORIDE\SODIUM LACTATE
     Indication: END STAGE RENAL DISEASE
     Dosage: 2000 ML WITH NO LAST FILL AND A DAYTIME EXCHANGE OF 2000 ML, SINCE 17DEC2018
     Route: 033
     Dates: start: 20181217

REACTIONS (1)
  - Death [Fatal]
